FAERS Safety Report 5284447-X (Version None)
Quarter: 2007Q2

REPORT INFORMATION
  Report Type: 
  Country: None (occurrence: None)
  Receive Date: 20070403
  Receipt Date: 20070326
  Transmission Date: 20071010
  Serious: Yes (Hospitalization)
  Sender: FDA-Public Use
  Company Number: 2007AP01390

PATIENT
  Age: 80 Year
  Sex: Female

DRUGS (15)
  1. MEROPEN KIT [Suspect]
     Indication: PNEUMONIA
     Route: 041
     Dates: start: 20070106, end: 20070108
  2. OMEGACIN [Suspect]
     Indication: PNEUMONIA
     Route: 041
     Dates: start: 20070109, end: 20070113
  3. DIOVAN [Concomitant]
     Indication: HYPERTENSION
     Route: 048
  4. MARZULENE-S [Concomitant]
     Indication: GASTRITIS
     Route: 048
  5. JUVELA-N [Concomitant]
     Indication: HYPERLIPIDAEMIA
     Route: 048
     Dates: end: 20070105
  6. INDERAL [Concomitant]
     Indication: HYPERTENSION
     Route: 048
  7. TRICOR [Concomitant]
     Indication: HYPERLIPIDAEMIA
     Route: 048
     Dates: end: 20070109
  8. MAGLAX [Concomitant]
     Indication: CONSTIPATION
     Route: 048
  9. UNASYN [Concomitant]
     Indication: PNEUMONIA
     Route: 041
     Dates: start: 20070104, end: 20070106
  10. LOXONIN [Concomitant]
     Indication: PYREXIA
     Dosage: 1-2 TIMES 6 TIMES/WEEK
     Route: 048
     Dates: start: 20070104, end: 20070114
  11. MEPTIN INHALANT [Concomitant]
     Indication: PNEUMONIA
     Route: 055
     Dates: start: 20070104, end: 20070124
  12. BISOLVON [Concomitant]
     Indication: PNEUMONIA
     Route: 055
     Dates: start: 20070104, end: 20070124
  13. JUVELA NICOTINATE [Concomitant]
     Indication: HYPERLIPIDAEMIA
     Route: 048
     Dates: start: 20070105
  14. LENDORMIN-D [Concomitant]
     Indication: INSOMNIA
     Dosage: FOUR TIMES A WEEK
     Route: 048
     Dates: start: 20070105, end: 20070120
  15. LIPIDIL [Concomitant]
     Indication: HYPERLIPIDAEMIA
     Route: 048
     Dates: start: 20070110

REACTIONS (2)
  - INTERSTITIAL LUNG DISEASE [None]
  - RASH [None]
